FAERS Safety Report 23424891 (Version 1)
Quarter: 2024Q1

REPORT INFORMATION
  Report Type: Other
  Country: GB (occurrence: GB)
  Receive Date: 20240121
  Receipt Date: 20240121
  Transmission Date: 20240410
  Serious: Yes (Other)
  Sender: FDA-Public Use
  Company Number: None

PATIENT
  Age: 73 Year
  Sex: Female
  Weight: 47 kg

DRUGS (22)
  1. PREDNISOLONE [Suspect]
     Active Substance: PREDNISOLONE
     Indication: Product used for unknown indication
     Dosage: 5 MILLIGRAM, TABLET
     Route: 065
  2. DIAZEPAM [Suspect]
     Active Substance: DIAZEPAM
     Indication: Dyspnoea
     Dosage: 1 DOSAGE FORM, PRN (UPTO FOUR TIMES PER DAY)
     Route: 065
     Dates: start: 20231129, end: 20231206
  3. AMOXICILLIN [Concomitant]
     Active Substance: AMOXICILLIN
     Indication: Product used for unknown indication
     Dosage: 1 DOSAGE FORM, TID
     Route: 065
     Dates: start: 20231120, end: 20231127
  4. TIOTROPIUM BROMIDE [Concomitant]
     Active Substance: TIOTROPIUM BROMIDE
     Indication: Product used for unknown indication
     Dosage: 1 DOSAGE FORM, QD, INHALE THE CONTENTS
     Route: 055
     Dates: start: 20230201
  5. CARBOCYSTEINE [Concomitant]
     Active Substance: CARBOCYSTEINE
     Indication: Product used for unknown indication
     Dosage: 2 DOSAGE FORM, TID
     Route: 065
     Dates: start: 20230201
  6. DERMOL [Concomitant]
     Active Substance: BENZALKONIUM CHLORIDE\CHLORHEXIDINE HYDROCHLORIDE\ISOPROPYL MYRISTATE\PARAFFIN
     Indication: Product used for unknown indication
     Dosage: APPLY AS DIRECTED AS A SKIN MOISTURISER AND AS ...
     Route: 065
     Dates: start: 20231103
  7. DOCUSATE SODIUM [Concomitant]
     Active Substance: DOCUSATE SODIUM
     Indication: Constipation
     Dosage: 2 DOSAGE FORM, BID, AS NEEDED
     Route: 065
     Dates: start: 20230202
  8. FERROUS FUMARATE [Concomitant]
     Active Substance: FERROUS FUMARATE
     Indication: Product used for unknown indication
     Dosage: 10 MILLILITER, BID
     Route: 065
     Dates: start: 20230619, end: 20230925
  9. BECLOMETHASONE\FORMOTEROL [Concomitant]
     Active Substance: BECLOMETHASONE\FORMOTEROL
     Indication: Product used for unknown indication
     Dosage: 2 DOSAGE FORM, BID, PUFFS
     Route: 065
     Dates: start: 20230609
  10. BUTYLSCOPOLAMINE BROMIDE [Concomitant]
     Active Substance: BUTYLSCOPOLAMINE BROMIDE
     Indication: Product used for unknown indication
     Dosage: 2 DOSAGE FORM, PRN, UP TO 4 TIMES/DAY FOR EXCESSIVE SECRET...
     Route: 065
     Dates: start: 20230620, end: 20230925
  11. IPRATROPIUM BROMIDE [Concomitant]
     Active Substance: IPRATROPIUM BROMIDE\IPRATROPIUM BROMIDE ANHYDROUS
     Indication: Dyspnoea
     Dosage: BID, USE ONE IN NEBULISER UP TO TWICE DAILY
     Route: 065
     Dates: start: 20231127
  12. LORAZEPAM [Concomitant]
     Active Substance: LORAZEPAM
     Indication: Product used for unknown indication
     Dosage: 0.5 DOSAGE FORM, PRN, MAXIMUM 2MG/ 24 HOURS
     Route: 065
     Dates: start: 20231127
  13. POLYETHYLENE GLYCOLS [Concomitant]
     Active Substance: POLYETHYLENE GLYCOLS
     Indication: Product used for unknown indication
     Dosage: 1 DOSAGE FORM, BID
     Route: 065
     Dates: start: 20230619
  14. METOCLOPRAMIDE [Concomitant]
     Active Substance: METOCLOPRAMIDE
     Indication: Product used for unknown indication
     Dosage: 1 DOSAGE FORM, TID, UPTO THREE TIMES A DAY
     Route: 065
     Dates: start: 20230810
  15. MORPHINE SULFATE [Concomitant]
     Active Substance: MORPHINE SULFATE
     Indication: Product used for unknown indication
     Dosage: TAKE 2.5ML - 5ML (5MG-10MG) EVERY FOUR HOURS WH...
     Route: 065
     Dates: start: 20230517
  16. NORTRIPTYLINE [Concomitant]
     Active Substance: NORTRIPTYLINE
     Indication: Product used for unknown indication
     Dosage: 1 DOSAGE FORM, QD, NIGHT
     Route: 065
     Dates: start: 20230201
  17. NYSTATIN [Concomitant]
     Active Substance: NYSTATIN
     Indication: Product used for unknown indication
     Dosage: 1 MILLILITER, QD, USE IN THE MOUTH AS DIRECTED
     Route: 065
     Dates: start: 20231127, end: 20231204
  18. OMEPRAZOLE [Concomitant]
     Active Substance: OMEPRAZOLE
     Indication: Product used for unknown indication
     Dosage: 1 DOSAGE FORM, QD, TO HELP PREVENT IND...
     Route: 065
     Dates: start: 20230907
  19. ACETAMINOPHEN [Concomitant]
     Active Substance: ACETAMINOPHEN
     Indication: Product used for unknown indication
     Dosage: IF WEIGHT BETWEEN 30KG AND 39KG: DOSE REDUCTION...
     Route: 065
     Dates: start: 20230620
  20. ALBUTEROL [Concomitant]
     Active Substance: ALBUTEROL
     Indication: Dyspnoea
     Dosage: AS ADVISED BY HOSPITAL TEAM
     Route: 065
     Dates: start: 20231127
  21. SODIUM CHLORIDE [Concomitant]
     Active Substance: SODIUM CHLORIDE
     Indication: Product used for unknown indication
     Dosage: USE AS DIRECTED
     Route: 065
     Dates: start: 20231127
  22. VENTOLIN [Concomitant]
     Active Substance: ALBUTEROL SULFATE
     Indication: Product used for unknown indication
     Dosage: 2 DOSAGE FORM, EVERY 4 HRS, WHEN NEEDED UP
     Route: 055
     Dates: start: 20230201

REACTIONS (4)
  - Psychomotor hyperactivity [Unknown]
  - Restlessness [Unknown]
  - Anxiety [Recovered/Resolved]
  - Off label use [Unknown]
